FAERS Safety Report 10237619 (Version 3)
Quarter: 2015Q3

REPORT INFORMATION
  Report Type: Report from Study
  Country: IT (occurrence: IT)
  Receive Date: 20140616
  Receipt Date: 20150827
  Transmission Date: 20151125
  Serious: Yes (Other)
  Sender: FDA-Public Use
  Company Number: IT-ROCHE-1417823

PATIENT

DRUGS (4)
  1. BEVACIZUMAB [Suspect]
     Active Substance: BEVACIZUMAB
     Indication: TRIPLE NEGATIVE BREAST CANCER
     Dosage: ON DAYS 1 AND 15
     Route: 065
  2. CARBOPLATIN. [Suspect]
     Active Substance: CARBOPLATIN
     Indication: TRIPLE NEGATIVE BREAST CANCER
     Route: 065
  3. BEVACIZUMAB [Suspect]
     Active Substance: BEVACIZUMAB
     Dosage: DAY-7
     Route: 065
  4. PACLITAXEL. [Suspect]
     Active Substance: PACLITAXEL
     Indication: TRIPLE NEGATIVE BREAST CANCER
     Dosage: ON DAYS 1, 8 AND 15.
     Route: 065

REACTIONS (8)
  - Fatigue [Unknown]
  - Transaminases increased [Unknown]
  - Mood altered [Unknown]
  - Deafness [Unknown]
  - Diarrhoea [Unknown]
  - Abdominal pain [Unknown]
  - Neuropathy peripheral [Unknown]
  - Neutropenia [Unknown]
